FAERS Safety Report 9266569 (Version 4)
Quarter: 2013Q4

REPORT INFORMATION
  Report Type: Spontaneous
  Country: GB (occurrence: GB)
  Receive Date: 20130502
  Receipt Date: 20131125
  Transmission Date: 20140711
  Serious: Yes (Other)
  Sender: FDA-Public Use
  Company Number: PHFR2013GB002431

PATIENT
  Age: 50 Year
  Sex: Male

DRUGS (13)
  1. CLOZARIL [Suspect]
     Indication: SCHIZOPHRENIA
     Dosage: UNK UKN, UNK
     Route: 048
     Dates: start: 20071109
  2. CLOZARIL [Suspect]
     Dosage: 450 MG, UNK
  3. CEPHALEXIN [Concomitant]
     Dosage: UNK UKN, UNK
  4. HALOPERIDOL [Concomitant]
  5. TRIMETHOPRIM [Concomitant]
     Dosage: UNK UKN, UNK
  6. DIAZEPAM [Concomitant]
     Indication: EPILEPSY
     Dosage: 10 MG, UNK
     Route: 048
  7. EPILIM [Concomitant]
     Indication: EPILEPSY
     Dosage: 2 G, UNK
     Route: 048
  8. PHENYTOIN [Concomitant]
     Indication: EPILEPSY
     Dosage: 450 MG, UNK
     Route: 048
  9. CLOBAZAM [Concomitant]
     Indication: EPILEPSY
     Dosage: 40 MG, UNK
     Route: 048
  10. TAMSULOSIN [Concomitant]
     Dosage: 800 UG, UNK
     Route: 048
  11. SENNA [Concomitant]
     Dosage: UNK
  12. OMEPRAZOLE [Concomitant]
     Dosage: UNK
  13. LAXAL//LACTULOSE [Concomitant]
     Dosage: UNK

REACTIONS (5)
  - Urinary tract infection [Recovered/Resolved]
  - Toxicity to various agents [Recovered/Resolved]
  - White blood cell count decreased [Recovered/Resolved]
  - Neutrophil count decreased [Recovered/Resolved]
  - Platelet count decreased [Recovered/Resolved]
